FAERS Safety Report 5333665-0 (Version None)
Quarter: 2007Q2

REPORT INFORMATION
  Report Type: 
  Country: None (occurrence: None)
  Receive Date: 20070524
  Receipt Date: 20070522
  Transmission Date: 20071010
  Serious: Yes (Other)
  Sender: FDA-Public Use
  Company Number: A0652355A

PATIENT
  Age: 52 Year
  Sex: Female

DRUGS (5)
  1. TYKERB [Suspect]
     Indication: BREAST CANCER
     Dosage: 5TAB PER DAY
     Route: 048
     Dates: start: 20070418
  2. XELODA [Suspect]
     Indication: BREAST CANCER
     Route: 048
  3. OXYCODONE HCL [Concomitant]
  4. ZOFRAN [Concomitant]
  5. DILAUDID [Concomitant]

REACTIONS (5)
  - DRY SKIN [None]
  - NAUSEA [None]
  - PALMAR-PLANTAR ERYTHRODYSAESTHESIA SYNDROME [None]
  - PALPITATIONS [None]
  - VOMITING [None]
